FAERS Safety Report 11618543 (Version 1)
Quarter: 2015Q4

REPORT INFORMATION
  Report Type: Spontaneous
  Country: US (occurrence: US)
  Receive Date: 20151012
  Receipt Date: 20151012
  Transmission Date: 20160304
  Serious: No
  Sender: FDA-Public Use
  Company Number: US-TEVA-563463USA

PATIENT
  Sex: Female

DRUGS (4)
  1. LESSINA [Concomitant]
     Active Substance: ETHINYL ESTRADIOL\LEVONORGESTREL
  2. YASMIN [Concomitant]
     Active Substance: DROSPIRENONE\ETHINYL ESTRADIOL
  3. SPRINTEC [Suspect]
     Active Substance: ETHINYL ESTRADIOL\NORGESTIMATE
     Indication: PRODUCT USED FOR UNKNOWN INDICATION
     Route: 048
     Dates: start: 201001, end: 20150509
  4. ORTHO TRI CYCLEN LO [Concomitant]
     Active Substance: ETHINYL ESTRADIOL\NORGESTIMATE

REACTIONS (8)
  - Alopecia [Unknown]
  - Premenstrual syndrome [Unknown]
  - Headache [Unknown]
  - Endometriosis [Unknown]
  - Anxiety [Unknown]
  - Cystitis interstitial [Unknown]
  - Weight abnormal [Unknown]
  - Food craving [Unknown]

NARRATIVE: CASE EVENT DATE: 2014
